FAERS Safety Report 6739342-3 (Version None)
Quarter: 2010Q2

REPORT INFORMATION
  Report Type: 
  Country: None (occurrence: None)
  Receive Date: 20100525
  Receipt Date: 20100512
  Transmission Date: 20101027
  Serious: Yes (Hospitalization)
  Sender: FDA-Public Use
  Company Number: US-BAYER-200933616NA

PATIENT
  Age: 42 Year
  Sex: Female

DRUGS (3)
  1. YAZ [Suspect]
     Indication: DRUG USE FOR UNKNOWN INDICATION
     Dosage: PHARMACY RECORDS: DISPENSED FROM 12-MAV-2008 TO 25-AUG-2009
     Route: 048
  2. YASMIN [Suspect]
     Indication: DRUG USE FOR UNKNOWN INDICATION
     Dosage: PHARMACY RECORDS: DISPENSED FROM 18-NOV-2005 TO 04-OCT-2008
     Route: 048
  3. OCELLA [Suspect]
     Indication: DRUG USE FOR UNKNOWN INDICATION
     Dosage: PHARMACY RECORDS: 11-JUL-2008

REACTIONS (1)
  - GALLBLADDER INJURY [None]
